FAERS Safety Report 21352860 (Version 1)
Quarter: 2022Q3

REPORT INFORMATION
  Report Type: Spontaneous
  Country: NL (occurrence: NL)
  Receive Date: 20220920
  Receipt Date: 20220920
  Transmission Date: 20221027
  Serious: Yes (Life-Threatening, Hospitalization, Other)
  Sender: FDA-Public Use
  Company Number: None

PATIENT
  Age: 63 Year
  Sex: Male
  Weight: 80 kg

DRUGS (16)
  1. QUETIAPINE [Suspect]
     Active Substance: QUETIAPINE
     Indication: Depression
     Dosage: 1 X PER DAY 1 PIECE, QUETIAPINE TABLET MGA 200MG / BRAND NAME NOT SPECIFIED, THERAPY END DATE : ASKU
     Dates: start: 20051111
  2. PFIZER-BIONTECH COVID-19 VACCINE [Suspect]
     Active Substance: TOZINAMERAN
     Indication: COVID-19 immunisation
     Dosage: COVID-19 VACCIN PFIZER INJVLST 0,3ML, THERAPY END DATE : ASKU, UNIT DOSE: 1 DF
     Dates: start: 20220719
  3. OXAZEPAM [Concomitant]
     Active Substance: OXAZEPAM
     Indication: Product used for unknown indication
     Dosage: OXAZEPAM TABLET 10MG / BRAND NAME NOT SPECIFIED, THERAPY START DATE AND END DATE : ASKU
  4. OXAZEPAM [Concomitant]
     Active Substance: OXAZEPAM
     Dosage: 1DD2T, OXAZEPAM TABLET 10MG / BRAND NAME NOT SPECIFIED, THERAPY START DATE : NASK, THERAPY END DATE
  5. EZETIMIBE [Concomitant]
     Active Substance: EZETIMIBE
     Indication: Product used for unknown indication
     Dosage: EZETIMIB TABLET 10MG / BRAND NAME NOT SPECIFIED, THERAPY START DATE AND END DATE : ASKU
  6. FLUTICASONE PROPIONATE\SALMETEROL XINAFOATE [Concomitant]
     Active Substance: FLUTICASONE PROPIONATE\SALMETEROL XINAFOATE
     Indication: Product used for unknown indication
     Dosage: SALMETEROL/FLUTICASON INHALATION POWDER 50/250UG/DO / BRAND NAME NOT SPECIFIED, THERAPY START DATE :
  7. FUROSEMIDE [Concomitant]
     Active Substance: FUROSEMIDE
     Indication: Product used for unknown indication
     Dosage: FUROSEMIDE TABLET 40MG / BRAND NAME NOT SPECIFIED, THERAPY START DATE AND END DATE : ASKU
  8. METOPROLOL SUCCINATE [Concomitant]
     Active Substance: METOPROLOL SUCCINATE
     Indication: Product used for unknown indication
     Dosage: METOPROLOL TABLET MGA  50MG (SUCCINAAT) / BRAND NAME NOT SPECIFIED, THERAPY START DATE AND END DATE
  9. INSULINE ASPART [Concomitant]
     Indication: Product used for unknown indication
     Dosage: INJECTION FLUID,INSULINE ASPART INJVLST 100E/ML / BRAND NAME NOT SPECIFIED, THERAPY START DATE AND E
  10. ATORVASTATIN [Concomitant]
     Active Substance: ATORVASTATIN
     Indication: Product used for unknown indication
     Dosage: 1DD1T, ATORVASTATINE TABLET 40MG / BRAND NAME NOT SPECIFIED, THERAPY START DATE : NASK, THERAPY END
  11. GLICLAZIDE [Concomitant]
     Active Substance: GLICLAZIDE
     Indication: Diabetes mellitus
     Dosage: 1DD1T, GLICLAZIDE TABLET MGA 60MG / BRAND NAME NOT SPECIFIED, THERAPY START DATE : NASK, THERAPY END
  12. SPIRONOLACTONE [Concomitant]
     Active Substance: SPIRONOLACTONE
     Indication: Hypertension
     Dosage: 1DD1T, SPIRONOLACTON TABLET 12,5MG / BRAND NAME NOT SPECIFIED, THERAPY START DATE : NASK, THERAPY EN
  13. INSULIN GLARGINE [Concomitant]
     Active Substance: INSULIN GLARGINE
     Indication: Product used for unknown indication
     Dosage: INJECTION FLUID,  INSULINE GLARGINE 100E/ML INJVLST / ABASAGLAR INJVLST 100E/ML PEN 3ML, THERAPY STA
  14. PANTOPRAZOLE SODIUM [Concomitant]
     Active Substance: PANTOPRAZOLE SODIUM
     Indication: Product used for unknown indication
     Dosage: 1DD1T, PANTOPRAZOL TABLET MSR 40MG / BRAND NAME NOT SPECIFIED, THERAPY START DATE : NASK, THERAPY EN
  15. METFORMIN HYDROCHLORIDE [Concomitant]
     Active Substance: METFORMIN HYDROCHLORIDE
     Indication: Diabetes mellitus
     Dosage: 2DD1T, METFORMINE TABLET   500MG / BRAND NAME NOT SPECIFIED, THERAPY START DATE : NASK, THERAPY END
  16. PHENPROCOUMON [Concomitant]
     Active Substance: PHENPROCOUMON
     Indication: Product used for unknown indication
     Dosage: FENPROCOUMON TABLET 3MG / BRAND NAME NOT SPECIFIED, THERAPY START DATE AND END DATE : ASKU

REACTIONS (1)
  - Ventricular tachycardia [Recovering/Resolving]

NARRATIVE: CASE EVENT DATE: 20220721
